FAERS Safety Report 9936740 (Version 2)
Quarter: 2014Q1

REPORT INFORMATION
  Report Type: Spontaneous
  Country: FR (occurrence: FR)
  Receive Date: 20140228
  Receipt Date: 20140326
  Transmission Date: 20141002
  Serious: Yes (Other)
  Sender: FDA-Public Use
  Company Number: FR-ROCHE-1357865

PATIENT
  Age: 83 Year
  Sex: Female
  Weight: 89 kg

DRUGS (4)
  1. LUCENTIS [Suspect]
     Indication: AGE-RELATED MACULAR DEGENERATION
     Dosage: 15/JAN/2013, 11/FEB/2013, 28/MAY/2013, 08/JUL/2013
     Route: 050
     Dates: start: 20121217
  2. FUROSEMIDE [Concomitant]
     Route: 065
  3. COVERSYL [Concomitant]
     Route: 065
  4. SOTALOL [Concomitant]

REACTIONS (5)
  - Erythema [Not Recovered/Not Resolved]
  - Alopecia [Not Recovered/Not Resolved]
  - Dandruff [Not Recovered/Not Resolved]
  - Scab [Not Recovered/Not Resolved]
  - Generalised erythema [Not Recovered/Not Resolved]
